FAERS Safety Report 7849939-5 (Version None)
Quarter: 2011Q4

REPORT INFORMATION
  Report Type: 
  Country: None (occurrence: None)
  Receive Date: 20111025
  Receipt Date: 20111025
  Transmission Date: 20120403
  Serious: Yes (Hospitalization)
  Sender: FDA-Public Use
  Company Number: None

PATIENT
  Age: 85 Year
  Sex: Male
  Weight: 74.9 kg

DRUGS (1)
  1. PHENAZOPYRIDINE HCL TAB [Suspect]
     Indication: BLADDER CANCER
     Dates: start: 20110531, end: 20110531

REACTIONS (1)
  - METHAEMOGLOBINAEMIA [None]
